FAERS Safety Report 9684835 (Version 1)
Quarter: 2013Q4

REPORT INFORMATION
  Report Type: Report from Study
  Country: DE (occurrence: DE)
  Receive Date: 20131112
  Receipt Date: 20131112
  Transmission Date: 20140711
  Serious: Yes (Hospitalization)
  Sender: FDA-Public Use
  Company Number: DE-PFIZER INC-2013317584

PATIENT
  Sex: Female
  Weight: 74 kg

DRUGS (13)
  1. EXEMESTANE [Suspect]
     Indication: BREAST CANCER METASTATIC
     Dosage: 25 MG, 1X/DAY
     Route: 048
     Dates: start: 20130225, end: 20130818
  2. AFINITOR [Suspect]
     Indication: BREAST CANCER METASTATIC
     Dosage: 10 MG, 1X/DAY
     Route: 048
     Dates: start: 20130225, end: 20130602
  3. AFINITOR [Suspect]
     Dosage: 5 MG, 1X/DAY
     Route: 048
     Dates: start: 20130617, end: 20130722
  4. AFINITOR [Suspect]
     Dosage: 10 MG, 1X/DAY
     Route: 048
     Dates: start: 20130723, end: 20130805
  5. AFINITOR [Suspect]
     Dosage: 5 MG, 1X/DAY
     Route: 048
     Dates: start: 20130805, end: 20130818
  6. BISPHOSPHONATES [Concomitant]
  7. CALCIUM [Concomitant]
     Dosage: UNK
     Dates: start: 20130820
  8. BISOPROLOL [Concomitant]
     Dosage: UNK
  9. PANTOZOL [Concomitant]
     Dosage: UNK
  10. ASS [Concomitant]
     Dosage: 100 MG, UNK
  11. SIMVASTATIN [Concomitant]
     Dosage: UNK
  12. ZOMETA [Concomitant]
     Dosage: UNK
     Dates: start: 20130325
  13. METFORMIN [Concomitant]
     Dosage: UNK
     Dates: start: 201306, end: 201306

REACTIONS (1)
  - Renal failure [Recovering/Resolving]
